FAERS Safety Report 8603079-6 (Version None)
Quarter: 2012Q3

REPORT INFORMATION
  Report Type: 
  Country: None (occurrence: None)
  Receive Date: 20120817
  Receipt Date: 20120808
  Transmission Date: 20120928
  Serious: Yes (Hospitalization)
  Sender: FDA-Public Use
  Company Number: FR-ROCHE-1041479

PATIENT
  Sex: Male
  Weight: 64 kg

DRUGS (3)
  1. DOCETAXEL [Suspect]
     Indication: LUNG NEOPLASM MALIGNANT
     Route: 042
     Dates: start: 20120201, end: 20120208
  2. AVASTIN [Suspect]
     Dates: start: 20110512
  3. AVASTIN [Suspect]
     Indication: LUNG NEOPLASM MALIGNANT
     Dates: start: 20110421

REACTIONS (4)
  - DIARRHOEA [None]
  - PYREXIA [None]
  - PERFORMANCE STATUS DECREASED [None]
  - SEPTIC SHOCK [None]
